FAERS Safety Report 9912205 (Version 1)
Quarter: 2014Q1

REPORT INFORMATION
  Report Type: Spontaneous
  Country: TW (occurrence: TW)
  Receive Date: 20140220
  Receipt Date: 20140220
  Transmission Date: 20141002
  Serious: Yes (Death)
  Sender: FDA-Public Use
  Company Number: TW-BRISTOL-MYERS SQUIBB COMPANY-20190799

PATIENT
  Sex: 0

DRUGS (1)
  1. YERVOY [Suspect]
     Dosage: 2 DOSES
     Dates: start: 20140101

REACTIONS (1)
  - Death [Fatal]
